FAERS Safety Report 7651000-X (Version None)
Quarter: 2011Q3

REPORT INFORMATION
  Report Type: 
  Country: None (occurrence: None)
  Receive Date: 20110727
  Receipt Date: 20110711
  Transmission Date: 20111222
  Serious: Yes (Hospitalization)
  Sender: FDA-Public Use
  Company Number: 2011MA008642

PATIENT
  Age: 55 Year
  Sex: Female

DRUGS (3)
  1. OLANZAPINE [Concomitant]
  2. VENLAFAXINE HYDROCHLORIDE [Suspect]
     Indication: SCHIZOAFFECTIVE DISORDER DEPRESSIVE TYPE
     Dosage: 150 MG;QD
  3. LEVOMEPROMAZINE [Concomitant]

REACTIONS (4)
  - NAUSEA [None]
  - ILEUS PARALYTIC [None]
  - CONSTIPATION [None]
  - ABDOMINAL PAIN [None]
